FAERS Safety Report 8746447 (Version 2)
Quarter: 2012Q4

REPORT INFORMATION
  Report Type: 
  Country: US (occurrence: US)
  Receive Date: 20120827
  Receipt Date: 20121022
  Transmission Date: 20130627
  Serious: Yes (Hospitalization, Other)
  Sender: FDA-Public Use
  Company Number: US-ELI_LILLY_AND_COMPANY-US201208005244

PATIENT
  Sex: Female

DRUGS (3)
  1. CYMBALTA [Suspect]
     Indication: DEPRESSION
     Dosage: 120 mg, qd
     Dates: end: 2012
  2. CYMBALTA [Suspect]
     Dosage: UNK
     Dates: start: 201208
  3. XANAX [Concomitant]

REACTIONS (3)
  - Suicidal ideation [Unknown]
  - Suicide attempt [Unknown]
  - Drug withdrawal syndrome [Unknown]
